FAERS Safety Report 4975435-9 (Version None)
Quarter: 2006Q2

REPORT INFORMATION
  Report Type: 
  Country: None (occurrence: None)
  Receive Date: 20060418
  Receipt Date: 20060411
  Transmission Date: 20061013
  Serious: Yes (Death)
  Sender: FDA-Public Use
  Company Number: US-JNJFOC-20060402996

PATIENT
  Age: 17 Year
  Sex: Male

DRUGS (6)
  1. CYCLOBENZAPRINE HCL [Suspect]
     Indication: SUICIDE ATTEMPT
     Dosage: UNKNOWN
  2. AMITRIPTYLINE HCL [Suspect]
     Dosage: UNKNOWN
  3. IMIPRAMINE [Suspect]
     Dosage: UNKNOWN
  4. VERAPAMIL [Suspect]
     Dosage: UNKNOWN
  5. CARISOPRODOL [Suspect]
     Dosage: UNKNOWN
  6. FLUOXETINE HCL [Suspect]
     Dosage: UNKNOWN

REACTIONS (2)
  - COMPLETED SUICIDE [None]
  - MULTIPLE DRUG OVERDOSE INTENTIONAL [None]
